FAERS Safety Report 23862801 (Version 1)
Quarter: 2024Q2

REPORT INFORMATION
  Report Type: Spontaneous
  Country: US (occurrence: US)
  Receive Date: 20240516
  Receipt Date: 20240516
  Transmission Date: 20240716
  Serious: No
  Sender: FDA-Public Use
  Company Number: US-HALEON-2175584

PATIENT

DRUGS (1)
  1. PARODONTAX ACTIVE GUM REPAIR BREATH FRESHENER [Suspect]
     Active Substance: STANNOUS FLUORIDE
     Indication: Dental disorder prophylaxis

REACTIONS (2)
  - Gingival pain [Unknown]
  - Hyperaesthesia teeth [Unknown]
